FAERS Safety Report 8390848-3 (Version None)
Quarter: 2012Q2

REPORT INFORMATION
  Report Type: 
  Country: None (occurrence: None)
  Receive Date: 20120529
  Receipt Date: 20120521
  Transmission Date: 20120825
  Serious: Yes (Death, Other)
  Sender: FDA-Public Use
  Company Number: DE-CELGENEUS-062-CCAZA-09042155

PATIENT

DRUGS (2)
  1. VIDAZA [Suspect]
     Dosage: 100 MILLIGRAM/SQ. METER
     Route: 065
  2. VALPROIC ACID [Suspect]
     Dosage: ACHEIVE AND MAINTAIN SERUM LEVEL 80-110UG/ML
     Route: 048

REACTIONS (21)
  - PANCYTOPENIA [None]
  - SOMNOLENCE [None]
  - SKIN REACTION [None]
  - INFLUENZA [None]
  - NAUSEA [None]
  - PNEUMONIA [None]
  - SEPSIS [None]
  - LEUKOCYTOSIS [None]
  - CONFUSIONAL STATE [None]
  - NEUTROPENIA [None]
  - NERVOUS SYSTEM DISORDER [None]
  - FATIGUE [None]
  - CONSTIPATION [None]
  - FEBRILE NEUTROPENIA [None]
  - RASH [None]
  - DIARRHOEA [None]
  - HYPOKALAEMIA [None]
  - DYSPNOEA [None]
  - DEVICE RELATED INFECTION [None]
  - BONE MARROW FAILURE [None]
  - PYREXIA [None]
